FAERS Safety Report 5616214-9 (Version None)
Quarter: 2008Q1

REPORT INFORMATION
  Report Type: 
  Country: None (occurrence: None)
  Receive Date: 20080206
  Receipt Date: 20080125
  Transmission Date: 20080703
  Serious: Yes (Other)
  Sender: FDA-Public Use
  Company Number: GR-GENENTECH-253421

PATIENT
  Sex: Male

DRUGS (8)
  1. MABTHERA [Suspect]
     Indication: B-CELL LYMPHOMA
     Dosage: UNK, UNK
     Route: 042
     Dates: start: 20061001
  2. DEXAMETHASONE TAB [Concomitant]
     Indication: B-CELL LYMPHOMA
     Dates: start: 20061001
  3. CYTARABINE [Concomitant]
     Indication: B-CELL LYMPHOMA
     Dates: start: 20061001
  4. CISPLATIN [Concomitant]
     Indication: B-CELL LYMPHOMA
     Dates: start: 20061001
  5. METHOTREXATE [Concomitant]
     Indication: B-CELL LYMPHOMA
     Dosage: UNK, SINGLE
  6. TRANSFUSION NOS [Concomitant]
     Indication: DRUG USE FOR UNKNOWN INDICATION
  7. EPOGEN [Concomitant]
     Indication: DRUG USE FOR UNKNOWN INDICATION
  8. HYDROCORTISONE [Concomitant]
     Indication: ADRENAL INSUFFICIENCY

REACTIONS (5)
  - HEPATITIS B ANTIBODY POSITIVE [None]
  - PROGRESSIVE MULTIFOCAL LEUKOENCEPHALOPATHY [None]
  - SCROTAL INFECTION [None]
  - SEPTIC EMBOLUS [None]
  - TUBERCULOSIS [None]
